FAERS Safety Report 7826431-5 (Version None)
Quarter: 2011Q4

REPORT INFORMATION
  Report Type: 
  Country: None (occurrence: None)
  Receive Date: 20111020
  Receipt Date: 20090728
  Transmission Date: 20120403
  Serious: No
  Sender: FDA-Public Use
  Company Number: 2009BI023707

PATIENT
  Age: 37 Year
  Sex: Female

DRUGS (3)
  1. AVONEX [Concomitant]
     Indication: MULTIPLE SCLEROSIS
     Route: 030
     Dates: start: 20081110
  2. TYSABRI [Suspect]
     Route: 042
     Dates: start: 20100928, end: 20101117
  3. TYSABRI [Suspect]
     Indication: MULTIPLE SCLEROSIS
     Route: 042
     Dates: start: 20090612, end: 20100318

REACTIONS (4)
  - URTICARIA [None]
  - DYSPNOEA [None]
  - PYREXIA [None]
  - HEADACHE [None]
